FAERS Safety Report 20457369 (Version 1)
Quarter: 2022Q1

REPORT INFORMATION
  Report Type: Report from Study
  Country: CA (occurrence: CA)
  Receive Date: 20220210
  Receipt Date: 20220210
  Transmission Date: 20220423
  Serious: Yes (Other)
  Sender: FDA-Public Use
  Company Number: CA-BIOGEN-2021BI01045589

PATIENT
  Age: 73 Year
  Sex: Female

DRUGS (2)
  1. DALFAMPRIDINE [Suspect]
     Active Substance: DALFAMPRIDINE
     Indication: Multiple sclerosis
     Route: 048
     Dates: start: 20190326
  2. DALFAMPRIDINE [Suspect]
     Active Substance: DALFAMPRIDINE
     Route: 048
     Dates: start: 20190326, end: 20220202

REACTIONS (17)
  - Breast cancer female [Unknown]
  - Magnetic resonance imaging abnormal [Unknown]
  - General physical health deterioration [Unknown]
  - Neuralgia [Unknown]
  - Vulvovaginal pain [Unknown]
  - Hypoaesthesia [Unknown]
  - Blood glucose increased [Unknown]
  - Feeling abnormal [Unknown]
  - Limb injury [Unknown]
  - Multiple sclerosis [Unknown]
  - Diarrhoea [Recovered/Resolved]
  - Fall [Recovered/Resolved]
  - Post procedural complication [Unknown]
  - Gait disturbance [Unknown]
  - Fatigue [Unknown]
  - Oropharyngeal pain [Recovered/Resolved]
  - Gait disturbance [Unknown]

NARRATIVE: CASE EVENT DATE: 20210822
